FAERS Safety Report 7314602-6 (Version None)
Quarter: 2011Q1

REPORT INFORMATION
  Report Type: 
  Country: None (occurrence: None)
  Receive Date: 20110225
  Receipt Date: 20101028
  Transmission Date: 20110831
  Serious: No
  Sender: FDA-Public Use
  Company Number: US-MYLANLABS-2010S1019009

PATIENT
  Age: 51 Year
  Sex: Female

DRUGS (1)
  1. AMNESTEEM [Suspect]
     Indication: ACNE
     Dates: start: 20100601, end: 20101001

REACTIONS (3)
  - ARTHRALGIA [None]
  - ECZEMA EYELIDS [None]
  - DRY SKIN [None]
